FAERS Safety Report 5292631-4 (Version None)
Quarter: 2007Q2

REPORT INFORMATION
  Report Type: 
  Country: None (occurrence: None)
  Receive Date: 20070404
  Receipt Date: 20070322
  Transmission Date: 20071010
  Serious: Yes (Hospitalization)
  Sender: FDA-Public Use
  Company Number: S07-FRA-01388-01

PATIENT
  Age: 71 Year
  Sex: Female

DRUGS (12)
  1. CITALOPRAM HYDROBROMIDE [Suspect]
  2. LEXOMIL (BROMAZEPAM) [Suspect]
  3. ENBREL [Suspect]
  4. TOBRADEX [Suspect]
  5. COSOPT [Suspect]
  6. BISOPRODOL FUMARATE [Suspect]
  7. ATARAX [Concomitant]
  8. PREDNISONE [Concomitant]
  9. FOSAMAX [Concomitant]
  10. AMLODIPINE BESYLATE [Concomitant]
  11. LEVOTHYROXINE SODIUM [Concomitant]
  12. POTASSIUM CHLORIDE [Concomitant]

REACTIONS (3)
  - LEUKOPENIA [None]
  - NEUTROPHIL COUNT DECREASED [None]
  - PLATELET COUNT DECREASED [None]
